FAERS Safety Report 16238602 (Version 3)
Quarter: 2019Q3

REPORT INFORMATION
  Report Type: Spontaneous
  Country: US (occurrence: US)
  Receive Date: 20190425
  Receipt Date: 20190913
  Transmission Date: 20191004
  Serious: No
  Sender: FDA-Public Use
  Company Number: US-SA-2019SA110821

PATIENT
  Age: 48 Year
  Sex: Female

DRUGS (1)
  1. CERDELGA [Suspect]
     Active Substance: ELIGLUSTAT
     Indication: GAUCHER^S DISEASE
     Dosage: 84 MG, QD
     Route: 048
     Dates: start: 20180911

REACTIONS (2)
  - Product use issue [Unknown]
  - Migraine [Unknown]

NARRATIVE: CASE EVENT DATE: 201906
